FAERS Safety Report 8923825 (Version 4)
Quarter: 2013Q1

REPORT INFORMATION
  Report Type: Spontaneous
  Country: JP (occurrence: JP)
  Receive Date: 20121126
  Receipt Date: 20130205
  Transmission Date: 20140127
  Serious: Yes (Other)
  Sender: FDA-Public Use
  Company Number: JP-JNJFOC-20121110947

PATIENT
  Age: 37 Year
  Sex: Male
  Weight: 59 kg

DRUGS (7)
  1. REMICADE [Suspect]
     Indication: CROHN^S DISEASE
     Dosage: 16TH INFUSION
     Route: 042
     Dates: start: 20120706
  2. REMICADE [Suspect]
     Indication: CROHN^S DISEASE
     Dosage: 15TH INFUSION
     Route: 042
     Dates: start: 20120511
  3. REMICADE [Suspect]
     Indication: CROHN^S DISEASE
     Route: 042
     Dates: start: 20100428
  4. FERROMIA [Concomitant]
     Indication: IRON DEFICIENCY ANAEMIA
     Route: 048
     Dates: start: 20060107
  5. GASMOTIN [Concomitant]
     Indication: CROHN^S DISEASE
     Route: 048
     Dates: start: 20061007
  6. BIO-THREE [Concomitant]
     Indication: CROHN^S DISEASE
     Route: 048
     Dates: start: 20110219
  7. PENTASA [Concomitant]
     Indication: CROHN^S DISEASE
     Route: 048

REACTIONS (1)
  - Pulmonary tuberculosis [Recovering/Resolving]
